FAERS Safety Report 6544334-3 (Version None)
Quarter: 2010Q1

REPORT INFORMATION
  Report Type: 
  Country: None (occurrence: None)
  Receive Date: 20100120
  Receipt Date: 20100120
  Transmission Date: 20100710
  Serious: Yes (Other)
  Sender: FDA-Public Use
  Company Number: None

PATIENT
  Age: 39 Year
  Sex: Female
  Weight: 86.637 kg

DRUGS (1)
  1. TYLENOL (CAPLET) [Suspect]
     Indication: OSTEOARTHRITIS
     Dosage: 2 CAPLETS 2-3 TIMES DAILY PO DAILY
     Route: 048
     Dates: start: 20091222, end: 20100119

REACTIONS (4)
  - ABDOMINAL PAIN UPPER [None]
  - DIARRHOEA [None]
  - GASTROENTERITIS VIRAL [None]
  - PRODUCT QUALITY ISSUE [None]
